FAERS Safety Report 4273693-X (Version None)
Quarter: 2004Q1

REPORT INFORMATION
  Report Type: 
  Country: None (occurrence: None)
  Receive Date: 20040114
  Receipt Date: 20040112
  Transmission Date: 20041129
  Serious: Yes (Death)
  Sender: FDA-Public Use
  Company Number: GBR-2004-0000849

PATIENT
  Age: 28 Year
  Sex: Male

DRUGS (6)
  1. OXYCONTIN [Suspect]
     Indication: PAIN
     Dosage: SEE IMAGE
     Dates: start: 20040104, end: 20040104
  2. OXYCONTIN [Suspect]
     Indication: PAIN
     Dosage: SEE IMAGE
     Dates: start: 20040105, end: 20040105
  3. RITALIN [Concomitant]
  4. VALIUM [Concomitant]
  5. SOMADRIL (CARISOPRODOL) [Concomitant]
  6. ZYPREXA [Concomitant]

REACTIONS (3)
  - INFECTION [None]
  - INJECTION SITE REACTION [None]
  - POST PROCEDURAL COMPLICATION [None]
